FAERS Safety Report 17875053 (Version 4)
Quarter: 2021Q2

REPORT INFORMATION
  Report Type: Spontaneous
  Country: US (occurrence: US)
  Receive Date: 20200609
  Receipt Date: 20210412
  Transmission Date: 20210717
  Serious: No
  Sender: FDA-Public Use
  Company Number: US-PFIZER INC-2020223738

PATIENT
  Age: 86 Year
  Sex: Male
  Weight: 87.09 kg

DRUGS (2)
  1. PREGABALIN. [Suspect]
     Active Substance: PREGABALIN
     Indication: PAIN
     Dosage: 1 DF [WOULD TAKE ONE PREGABALIN EVERY NOW AND THEN]
  2. PREGABALIN. [Suspect]
     Active Substance: PREGABALIN
     Dosage: 75 MG, 3X/DAY (PREGABALIN 75 MG CAPSULE TAKE 1 CAPSULE(S) 3 TIMES A DAY BY ORAL ROUTE)
     Route: 048

REACTIONS (4)
  - Drug ineffective [Unknown]
  - Insomnia [Recovering/Resolving]
  - Drug hypersensitivity [Unknown]
  - Rash [Recovered/Resolved]
